FAERS Safety Report 24708953 (Version 2)
Quarter: 2025Q1

REPORT INFORMATION
  Report Type: Spontaneous
  Country: US (occurrence: US)
  Receive Date: 20241208
  Receipt Date: 20250102
  Transmission Date: 20250408
  Serious: No
  Sender: LEO PHARM
  Company Number: US-LEO Pharma-375728

PATIENT
  Age: 43 Year
  Sex: Male

DRUGS (1)
  1. ADBRY [Suspect]
     Active Substance: TRALOKINUMAB-LDRM
     Indication: Idiopathic urticaria
     Dosage: TREATMENT REPORTED AS ONGOING
     Dates: start: 202410

REACTIONS (3)
  - Dry eye [Unknown]
  - Eyelid margin crusting [Unknown]
  - Product prescribing issue [Unknown]
